FAERS Safety Report 21274408 (Version 2)
Quarter: 2022Q3

REPORT INFORMATION
  Report Type: Spontaneous
  Country: US (occurrence: US)
  Receive Date: 20220831
  Receipt Date: 20220912
  Transmission Date: 20221026
  Serious: Yes (Other)
  Sender: FDA-Public Use
  Company Number: US-AMERICAN REGENT INC-2022002501

PATIENT
  Age: 17 Year
  Sex: Female

DRUGS (2)
  1. VENOFER [Suspect]
     Active Substance: IRON SUCROSE
     Indication: Iron deficiency anaemia
     Dosage: 400 MILLIGRAM (2X 200 MG)
     Route: 042
     Dates: start: 20220715, end: 20220715
  2. VENOFER [Suspect]
     Active Substance: IRON SUCROSE
     Dosage: 100 MILLIGRAM (1X 100 MG)
     Route: 042
     Dates: start: 20220715, end: 20220715

REACTIONS (4)
  - Hypoaesthesia [Recovered/Resolved]
  - Rash macular [Unknown]
  - Maternal exposure during pregnancy [Unknown]
  - Incorrect product administration duration [Unknown]

NARRATIVE: CASE EVENT DATE: 20220715
